FAERS Safety Report 13987532 (Version 1)
Quarter: 2017Q3

REPORT INFORMATION
  Report Type: Spontaneous
  Country: US (occurrence: None)
  Receive Date: 20170919
  Receipt Date: 20170919
  Transmission Date: 20171128
  Serious: Yes (Life-Threatening, Hospitalization)
  Sender: FDA-Public Use
  Company Number: None

PATIENT
  Age: 70 Year
  Sex: Female
  Weight: 88 kg

DRUGS (8)
  1. SYNTHROID [Concomitant]
     Active Substance: LEVOTHYROXINE SODIUM
  2. IMODIUM [Concomitant]
     Active Substance: LOPERAMIDE HYDROCHLORIDE
  3. BYDUREON [Suspect]
     Active Substance: EXENATIDE
     Indication: DIABETES MELLITUS
     Dosage: TOOK 27 WEEKS + TO STOP
     Dates: start: 20150707, end: 20150909
  4. CLOPIDOGREL [Concomitant]
     Active Substance: CLOPIDOGREL BISULFATE
  5. JARDIANCE [Concomitant]
     Active Substance: EMPAGLIFLOZIN
  6. LOSARTAN/HCT [Concomitant]
     Active Substance: HYDROCHLOROTHIAZIDE\LOSARTAN POTASSIUM
  7. NOVOLOG [Concomitant]
     Active Substance: INSULIN ASPART
  8. ASPIRIN. [Concomitant]
     Active Substance: ASPIRIN

REACTIONS (13)
  - Pain [None]
  - Alopecia [None]
  - Injection site urticaria [None]
  - Urinary tract infection [None]
  - Weight increased [None]
  - Diarrhoea [None]
  - Dysstasia [None]
  - Back pain [None]
  - Pulse abnormal [None]
  - Blister [None]
  - Hypophagia [None]
  - Blood potassium decreased [None]
  - Hypotension [None]

NARRATIVE: CASE EVENT DATE: 20150923
